FAERS Safety Report 24839681 (Version 2)
Quarter: 2025Q1

REPORT INFORMATION
  Report Type: Report from Study
  Country: PE (occurrence: PE)
  Receive Date: 20250114
  Receipt Date: 20250222
  Transmission Date: 20250408
  Serious: Yes (Other)
  Sender: ROCHE
  Company Number: PE-ROCHE-10000176687

PATIENT
  Sex: Female

DRUGS (1)
  1. PERJETA [Suspect]
     Active Substance: PERTUZUMAB
     Indication: Product used for unknown indication
     Route: 065

REACTIONS (4)
  - Breast neoplasm [Unknown]
  - Mood altered [Unknown]
  - Depressed mood [Unknown]
  - Depressed mood [Unknown]
